FAERS Safety Report 15677375 (Version 1)
Quarter: 2018Q4

REPORT INFORMATION
  Report Type: Spontaneous
  Country: US (occurrence: US)
  Receive Date: 20181130
  Receipt Date: 20181130
  Transmission Date: 20190205
  Serious: Yes (Other)
  Sender: FDA-Public Use
  Company Number: US-SA-2018SA212175

PATIENT
  Age: 61 Year
  Sex: Female
  Weight: 66.7 kg

DRUGS (3)
  1. WELCHOL [Suspect]
     Active Substance: COLESEVELAM HYDROCHLORIDE
     Indication: BLOOD CHOLESTEROL INCREASED
     Dosage: 1250 MG, BID
     Route: 048
     Dates: start: 2014
  2. ZETIA [Concomitant]
     Active Substance: EZETIMIBE
     Dosage: UNK UNK, UNK
     Route: 065
  3. ASPIRIN [ACETYLSALICYLIC ACID] [Concomitant]
     Active Substance: ASPIRIN
     Dosage: UNK UNK, UNK
     Route: 065

REACTIONS (13)
  - Neck surgery [Unknown]
  - Off label use [Not Recovered/Not Resolved]
  - Spinal fusion surgery [Unknown]
  - Hypertension [Unknown]
  - Intervertebral disc protrusion [Unknown]
  - Fall [Unknown]
  - Rotator cuff syndrome [Unknown]
  - Flatulence [Unknown]
  - Constipation [Unknown]
  - Rotator cuff repair [Unknown]
  - Muscular weakness [Unknown]
  - Dyspepsia [Unknown]
  - Treatment noncompliance [Unknown]

NARRATIVE: CASE EVENT DATE: 2015
